FAERS Safety Report 6395421-4 (Version None)
Quarter: 2009Q4

REPORT INFORMATION
  Report Type: 
  Country: None (occurrence: None)
  Receive Date: 20091009
  Receipt Date: 20091008
  Transmission Date: 20100525
  Serious: Yes (Other)
  Sender: FDA-Public Use
  Company Number: US-PFIZER INC-2008155890

PATIENT
  Sex: Female

DRUGS (2)
  1. LIPITOR [Suspect]
  2. ARICEPT [Suspect]

REACTIONS (3)
  - MEMORY IMPAIRMENT [None]
  - PANIC ATTACK [None]
  - SLEEP DISORDER [None]
